APPROVED DRUG PRODUCT: LEVONORGESTREL AND ETHINYL ESTRADIOL
Active Ingredient: ETHINYL ESTRADIOL; LEVONORGESTREL
Strength: 0.02MG;0.1MG
Dosage Form/Route: TABLET;ORAL-28
Application: A076625 | Product #001 | TE Code: AB1
Applicant: DR REDDYS LABORATORIES SA
Approved: Nov 18, 2004 | RLD: No | RS: Yes | Type: RX